FAERS Safety Report 7284503-0 (Version None)
Quarter: 2011Q1

REPORT INFORMATION
  Report Type: 
  Country: None (occurrence: None)
  Receive Date: 20110209
  Receipt Date: 20110207
  Transmission Date: 20110831
  Serious: Yes (Other)
  Sender: FDA-Public Use
  Company Number: US-ABBOTT-11P-163-0702524-00

PATIENT
  Sex: Female
  Weight: 77.18 kg

DRUGS (12)
  1. PROPOXYPHENE HYDROCHLORIDE [Concomitant]
     Indication: PAIN
  2. HUMALOG [Concomitant]
     Indication: PRODUCT USED FOR UNKNOWN INDICATION
     Dosage: SLIDING SCALE
  3. NOVOLIN 70/30 [Concomitant]
     Indication: PRODUCT USED FOR UNKNOWN INDICATION
     Dosage: 70/30
  4. LISINOPRIL [Concomitant]
     Indication: PRODUCT USED FOR UNKNOWN INDICATION
  5. HUMIRA [Suspect]
     Indication: ANKYLOSING SPONDYLITIS
     Route: 058
     Dates: start: 20100801, end: 20100801
  6. PREDNISONE [Concomitant]
     Indication: PRODUCT USED FOR UNKNOWN INDICATION
     Dosage: 1993
  7. HYDROCHLOROTHIAZIDE [Concomitant]
     Indication: PRODUCT USED FOR UNKNOWN INDICATION
  8. HUMIRA [Suspect]
     Indication: RHEUMATOID ARTHRITIS
     Dosage: ONE DOSE
     Dates: start: 20080101, end: 20091101
  9. CRESTOR [Concomitant]
     Indication: PRODUCT USED FOR UNKNOWN INDICATION
  10. ZANTAC [Concomitant]
     Indication: DYSPEPSIA
  11. GABAPENTIN [Concomitant]
     Indication: PRODUCT USED FOR UNKNOWN INDICATION
  12. METOPROLOL [Concomitant]
     Indication: PRODUCT USED FOR UNKNOWN INDICATION

REACTIONS (4)
  - CEREBROVASCULAR ACCIDENT [None]
  - CORONARY ARTERY OCCLUSION [None]
  - OSTEOARTHRITIS [None]
  - CORONARY ARTERY BYPASS [None]
